FAERS Safety Report 26028603 (Version 2)
Quarter: 2025Q4

REPORT INFORMATION
  Report Type: Spontaneous
  Country: US (occurrence: US)
  Receive Date: 20251111
  Receipt Date: 20251113
  Transmission Date: 20260118
  Serious: No
  Sender: NOVARTIS
  Company Number: US-002147023-NVSC2025US174011

PATIENT
  Age: 20 Year
  Sex: Female

DRUGS (1)
  1. RHAPSIDO [Suspect]
     Active Substance: REMIBRUTINIB
     Indication: Chronic spontaneous urticaria
     Dosage: 50 MG (25 MG ORALLY TWICE DAILY)
     Route: 048
     Dates: start: 20251017, end: 20251031

REACTIONS (1)
  - Urticaria [Not Recovered/Not Resolved]
